FAERS Safety Report 21397438 (Version 1)
Quarter: 2022Q3

REPORT INFORMATION
  Report Type: Report from Study
  Country: AR (occurrence: AR)
  Receive Date: 20220930
  Receipt Date: 20220930
  Transmission Date: 20221026
  Serious: Yes (Life-Threatening, Hospitalization, Other)
  Sender: FDA-Public Use
  Company Number: AR-NOVARTISPH-NVSC2021AR185914

PATIENT
  Age: 72 Year
  Sex: Female

DRUGS (1)
  1. KISQALI [Suspect]
     Active Substance: RIBOCICLIB
     Indication: Breast cancer metastatic
     Dosage: 600 MG, QD
     Route: 048
     Dates: start: 20210514, end: 20220817

REACTIONS (23)
  - Feeling abnormal [Unknown]
  - Decreased immune responsiveness [Unknown]
  - Pneumonia [Recovering/Resolving]
  - Breast cancer metastatic [Unknown]
  - Malignant neoplasm progression [Unknown]
  - Metastases to bone [Not Recovered/Not Resolved]
  - Liver disorder [Unknown]
  - Lung disorder [Unknown]
  - Breast mass [Unknown]
  - Diverticulum [Unknown]
  - Food aversion [Unknown]
  - Pain [Unknown]
  - Malaise [Unknown]
  - Solar lentigo [Unknown]
  - Breast disorder [Unknown]
  - Animal bite [Unknown]
  - Depressed mood [Unknown]
  - Nasopharyngitis [Unknown]
  - Abdominal pain upper [Unknown]
  - Cough [Unknown]
  - Decreased appetite [Unknown]
  - Pyrexia [Unknown]
  - Inappropriate schedule of product administration [Unknown]

NARRATIVE: CASE EVENT DATE: 20220815
